FAERS Safety Report 19101548 (Version 1)
Quarter: 2021Q2

REPORT INFORMATION
  Report Type: Report from Study
  Country: None (occurrence: IE)
  Receive Date: 20210407
  Receipt Date: 20210407
  Transmission Date: 20210717
  Serious: Yes (Hospitalization)
  Sender: FDA-Public Use
  Company Number: IE-ABBVIE-21K-229-3751559-00

PATIENT
  Age: 6 Year
  Sex: Male

DRUGS (2)
  1. HUMIRA [Suspect]
     Active Substance: ADALIMUMAB
     Indication: CROHN^S DISEASE
     Route: 058
     Dates: start: 20200417
  2. HUMIRA [Suspect]
     Active Substance: ADALIMUMAB
     Route: 058

REACTIONS (4)
  - Abdominal pain [Recovered/Resolved]
  - Vomiting [Recovered/Resolved]
  - Gastrointestinal infection [Recovered/Resolved]
  - Intestinal stenosis [Recovered/Resolved]

NARRATIVE: CASE EVENT DATE: 20210123
